FAERS Safety Report 7642951-0 (Version None)
Quarter: 2011Q3

REPORT INFORMATION
  Report Type: 
  Country: None (occurrence: None)
  Receive Date: 20110728
  Receipt Date: 20110222
  Transmission Date: 20111222
  Serious: No
  Sender: FDA-Public Use
  Company Number: US-BAYER-2011-027964

PATIENT
  Age: 71 Year
  Sex: Male

DRUGS (1)
  1. DESONATE [Suspect]
     Indication: DERMATITIS ATOPIC
     Dosage: UNK UNK, BID
     Route: 061
     Dates: start: 20110217, end: 20110219

REACTIONS (4)
  - APPLICATION SITE PAIN [None]
  - APPLICATION SITE EXFOLIATION [None]
  - ERYTHEMA [None]
  - FEELING HOT [None]
